FAERS Safety Report 24728872 (Version 1)
Quarter: 2024Q4

REPORT INFORMATION
  Report Type: Report from Study
  Country: AU (occurrence: AU)
  Receive Date: 20241212
  Receipt Date: 20241212
  Transmission Date: 20250115
  Serious: Yes (Hospitalization)
  Sender: TAKEDA
  Company Number: AU-TAKEDA-2024TUS119760

PATIENT
  Sex: Male

DRUGS (3)
  1. HUMAN IMMUNOGLOBULIN G [Suspect]
     Active Substance: HUMAN IMMUNOGLOBULIN G
     Indication: Primary immunodeficiency syndrome
     Dosage: 40 GRAM, 1/WEEK
     Dates: start: 20241128
  2. HUMAN IMMUNOGLOBULIN G [Suspect]
     Active Substance: HUMAN IMMUNOGLOBULIN G
     Dosage: 2 GRAM, 1/WEEK
  3. HUMAN IMMUNOGLOBULIN G [Suspect]
     Active Substance: HUMAN IMMUNOGLOBULIN G
     Dosage: 8 GRAM, 1/WEEK

REACTIONS (6)
  - Pilonidal disease [Recovering/Resolving]
  - Arthritis [Recovered/Resolved]
  - Infusion site erythema [Recovering/Resolving]
  - Infusion site pruritus [Recovering/Resolving]
  - Headache [Recovered/Resolved]
  - Post procedural discomfort [Recovering/Resolving]
